FAERS Safety Report 7491434-X (Version None)
Quarter: 2011Q2

REPORT INFORMATION
  Report Type: 
  Country: None (occurrence: None)
  Receive Date: 20110519
  Receipt Date: 20110506
  Transmission Date: 20111010
  Serious: Yes (Hospitalization)
  Sender: FDA-Public Use
  Company Number: PHHY2011DE40375

PATIENT
  Age: 59 Year
  Sex: Female

DRUGS (3)
  1. ALENDRONATE SODIUM [Suspect]
     Indication: BREAST CANCER
     Route: 048
     Dates: start: 20040101, end: 20040301
  2. IBANDRONATE SODIUM [Concomitant]
     Indication: BREAST CANCER
     Route: 042
     Dates: start: 20070701, end: 20100601
  3. ZOMETA [Suspect]
     Indication: BREAST CANCER
     Dosage: UNK
     Route: 042
     Dates: start: 20040301, end: 20070701

REACTIONS (1)
  - OSTEONECROSIS OF JAW [None]
